FAERS Safety Report 5225432-3 (Version None)
Quarter: 2007Q1

REPORT INFORMATION
  Report Type: 
  Country: None (occurrence: None)
  Receive Date: 20061201
  Receipt Date: 20060822
  Transmission Date: 20070707
  Serious: No
  Sender: FDA-Public Use
  Company Number: US200608004818

PATIENT
  Age: 46 Year
  Sex: Male

DRUGS (3)
  1. CYMBALTA [Suspect]
     Indication: MOOD ALTERED
     Dosage: 60 MG
  2. FENTANYL [Concomitant]
  3. VICODIN [Concomitant]

REACTIONS (1)
  - MYOCLONUS [None]
